APPROVED DRUG PRODUCT: TEMBEXA
Active Ingredient: BRINCIDOFOVIR
Strength: 10MG/ML
Dosage Form/Route: SUSPENSION;ORAL
Application: N214460 | Product #001
Applicant: EMERGENT BIODEFENSE OPERATIONS LANSING LLC
Approved: Jun 4, 2021 | RLD: Yes | RS: Yes | Type: RX

PATENTS:
Patent 9303051 | Expires: Aug 31, 2031

EXCLUSIVITY:
Code: ODE-354 | Date: Jun 4, 2028